FAERS Safety Report 11925252 (Version 2)
Quarter: 2016Q1

REPORT INFORMATION
  Report Type: Spontaneous
  Country: US (occurrence: US)
  Receive Date: 20160118
  Receipt Date: 20160203
  Transmission Date: 20160526
  Serious: Yes (Death, Hospitalization)
  Sender: FDA-Public Use
  Company Number: US-MALLINCKRODT-T201600041

PATIENT
  Age: 64 Year
  Sex: Male

DRUGS (5)
  1. NORCO [Concomitant]
     Active Substance: ACETAMINOPHEN\HYDROCODONE BITARTRATE
     Dosage: 5 MG, TID
  2. H.P. ACTHAR [Suspect]
     Active Substance: CORTICOTROPIN
     Indication: RHEUMATOID ARTHRITIS
     Dosage: 80 UNITS 3 TIMES WKLY
     Route: 030
     Dates: start: 20150902, end: 201511
  3. VANCOMYCIN [Concomitant]
     Active Substance: VANCOMYCIN
  4. PEPCID [Concomitant]
     Active Substance: FAMOTIDINE
  5. FENTANYL. [Concomitant]
     Active Substance: FENTANYL

REACTIONS (3)
  - Fall [Unknown]
  - Confusional state [Unknown]
  - Septic shock [Fatal]

NARRATIVE: CASE EVENT DATE: 201511
